FAERS Safety Report 9200330 (Version 1)
Quarter: 2013Q1

REPORT INFORMATION
  Report Type: Spontaneous
  Country: US (occurrence: US)
  Receive Date: 20130329
  Receipt Date: 20130329
  Transmission Date: 20140127
  Serious: No
  Sender: FDA-Public Use
  Company Number: US-GLAXOSMITHKLINE-A0993369A

PATIENT
  Age: 49 Year
  Sex: Female
  Weight: 83.54 kg

DRUGS (10)
  1. BENLYSTA [Suspect]
     Indication: SYSTEMIC LUPUS ERYTHEMATOSUS
     Route: 042
     Dates: start: 20120831
  2. METHOTREXATE [Concomitant]
  3. PLAQUENIL [Concomitant]
  4. LISINOPRIL [Concomitant]
  5. ATENOLOL [Concomitant]
  6. LASIX [Concomitant]
  7. FLEXERIL [Concomitant]
  8. ASA [Concomitant]
     Dosage: 81MG PER DAY
  9. MULTIVITAMIN [Concomitant]
  10. IGG [Concomitant]

REACTIONS (4)
  - Productive cough [Not Recovered/Not Resolved]
  - Oropharyngeal pain [Not Recovered/Not Resolved]
  - Pyrexia [Not Recovered/Not Resolved]
  - Increased upper airway secretion [Not Recovered/Not Resolved]
